FAERS Safety Report 11853869 (Version 1)
Quarter: 2015Q4

REPORT INFORMATION
  Report Type: Spontaneous
  Country: US (occurrence: US)
  Receive Date: 20151219
  Receipt Date: 20151219
  Transmission Date: 20160305
  Serious: No
  Sender: FDA-Public Use
  Company Number: US-B.I. PHARMACEUTICALS,INC./RIDGEFIELD-2015-BI-68697BP

PATIENT
  Sex: Female

DRUGS (3)
  1. SIMETHICONE (DIMETHICONE) [Suspect]
     Active Substance: DIMETHICONE
     Indication: GASTROINTESTINAL DISORDER
  2. SIMETHICONE (DIMETHICONE) [Suspect]
     Active Substance: DIMETHICONE
     Indication: ABDOMINAL DISTENSION
     Dosage: 125 MG
     Route: 048
     Dates: start: 2014
  3. SIMETHICONE (DIMETHICONE) [Suspect]
     Active Substance: DIMETHICONE
     Indication: FLATULENCE
     Route: 065
     Dates: start: 2014, end: 201403

REACTIONS (3)
  - Gallbladder disorder [Recovered/Resolved]
  - Abdominal distension [Not Recovered/Not Resolved]
  - Gastrointestinal disorder [Not Recovered/Not Resolved]

NARRATIVE: CASE EVENT DATE: 201405
